FAERS Safety Report 6600322-X (Version None)
Quarter: 2010Q1

REPORT INFORMATION
  Report Type: 
  Country: None (occurrence: None)
  Receive Date: 20100224
  Receipt Date: 20100129
  Transmission Date: 20100710
  Serious: Yes (Other)
  Sender: FDA-Public Use
  Company Number: PHHY2010BR05328

PATIENT
  Sex: Male
  Weight: 70 kg

DRUGS (3)
  1. RITALIN [Suspect]
     Dosage: 1TABLET AT 08:00AM,1 TABLET AT 12:00 PM AND 1TABLET AT 06:00PM 2 MONTH AGO AND ON THE FIRST 3 DAYS
     Route: 048
  2. RITALIN [Suspect]
     Dosage: UNK
     Route: 048
     Dates: start: 20100129
  3. RITALIN LA [Suspect]
     Dosage: 1 CAPSULE DAILY
     Route: 048

REACTIONS (6)
  - AGITATION [None]
  - ANXIETY [None]
  - DISTURBANCE IN ATTENTION [None]
  - ENERGY INCREASED [None]
  - FATIGUE [None]
  - SUFFOCATION FEELING [None]
